FAERS Safety Report 5940382-2 (Version None)
Quarter: 2008Q4

REPORT INFORMATION
  Report Type: 
  Country: None (occurrence: None)
  Receive Date: 20081104
  Receipt Date: 20081023
  Transmission Date: 20090506
  Serious: Yes (Hospitalization, Other)
  Sender: FDA-Public Use
  Company Number: GB-ROCHE-588718

PATIENT
  Sex: Female
  Weight: 75 kg

DRUGS (7)
  1. ORLISTAT [Suspect]
     Indication: OBESITY
     Route: 048
     Dates: start: 20080221
  2. METFORMIN HCL [Concomitant]
     Route: 048
     Dates: start: 20040101
  3. INSULIN [Concomitant]
     Route: 058
  4. ASPIRIN [Concomitant]
     Indication: HYPERTENSION
     Route: 048
     Dates: start: 20060101
  5. CANDESARTAN CILEXETIL [Concomitant]
     Route: 048
     Dates: start: 20050101
  6. BENDROFLUAZIDE [Concomitant]
     Route: 048
     Dates: start: 20040101
  7. NOVOLOG MIX 70/30 [Concomitant]

REACTIONS (3)
  - CELLULITIS [None]
  - IRON DEFICIENCY [None]
  - MALABSORPTION [None]
